FAERS Safety Report 26088540 (Version 2)
Quarter: 2025Q4

REPORT INFORMATION
  Report Type: Report from Study
  Country: AR (occurrence: AR)
  Receive Date: 20251125
  Receipt Date: 20251226
  Transmission Date: 20260118
  Serious: Yes (Life-Threatening, Hospitalization)
  Sender: DAIICHI
  Company Number: AR-AstraZeneca-CH-00903302A

PATIENT
  Age: 51 Year
  Sex: Female

DRUGS (1)
  1. ENHERTU [Suspect]
     Active Substance: FAM-TRASTUZUMAB DERUXTECAN-NXKI
     Indication: HER2 positive breast cancer
     Dosage: 100 MG, ONCE EVERY 3 WK
     Route: 042
     Dates: start: 20250331

REACTIONS (9)
  - Haemorrhage [Unknown]
  - Head discomfort [Unknown]
  - Herpes zoster [Not Recovered/Not Resolved]
  - Rash [Unknown]
  - Dyspnoea [Not Recovered/Not Resolved]
  - Insomnia [Not Recovered/Not Resolved]
  - Back pain [Not Recovered/Not Resolved]
  - Generalised oedema [Not Recovered/Not Resolved]
  - Therapy interrupted [Unknown]

NARRATIVE: CASE EVENT DATE: 20251104
